FAERS Safety Report 5019190-5 (Version None)
Quarter: 2006Q2

REPORT INFORMATION
  Report Type: 
  Country: None (occurrence: None)
  Receive Date: 20060531
  Receipt Date: 20060523
  Transmission Date: 20061013
  Serious: Yes (Other)
  Sender: FDA-Public Use
  Company Number: S06-USA-01948-01

PATIENT

DRUGS (1)
  1. THYROID TAB [Suspect]
     Indication: WEIGHT CONTROL

REACTIONS (2)
  - HYPERTHYROIDISM [None]
  - OVERDOSE [None]
